FAERS Safety Report 4272602-7 (Version None)
Quarter: 2004Q1

REPORT INFORMATION
  Report Type: 
  Country: None (occurrence: None)
  Receive Date: 20040114
  Receipt Date: 20040114
  Transmission Date: 20041129
  Serious: Yes (Life-Threatening)
  Sender: FDA-Public Use
  Company Number: None

PATIENT
  Age: 30 Year
  Sex: Female
  Weight: 99.7913 kg

DRUGS (1)
  1. STACKER 2 EPHIDEREA FREE [Suspect]
     Indication: ASTHENIA
     Dosage: 1 PILL

REACTIONS (5)
  - DIARRHOEA [None]
  - DIZZINESS [None]
  - HEART RATE INCREASED [None]
  - NAUSEA [None]
  - VOMITING [None]
